FAERS Safety Report 10763668 (Version 4)
Quarter: 2015Q1

REPORT INFORMATION
  Report Type: Report from Study
  Country: DE (occurrence: DE)
  Receive Date: 20150204
  Receipt Date: 20150309
  Transmission Date: 20150721
  Serious: Yes (Death, Other)
  Sender: FDA-Public Use
  Company Number: DE-ABBVIE-15P-062-1342322-00

PATIENT
  Age: 56 Year
  Sex: Male
  Weight: 65 kg

DRUGS (1)
  1. LEUPRORELIN [Suspect]
     Active Substance: LEUPROLIDE ACETATE
     Indication: PROSTATE CANCER
     Route: 050
     Dates: start: 20120320, end: 20130718

REACTIONS (4)
  - Metastases to bone [Fatal]
  - Metastases to liver [Fatal]
  - Pain [Unknown]
  - Prostate cancer [Fatal]

NARRATIVE: CASE EVENT DATE: 20130522
